FAERS Safety Report 20964604 (Version 1)
Quarter: 2022Q2

REPORT INFORMATION
  Report Type: Spontaneous
  Country: DE (occurrence: DE)
  Receive Date: 20220615
  Receipt Date: 20220615
  Transmission Date: 20220721
  Serious: Yes (Death, Hospitalization, Other)
  Sender: FDA-Public Use
  Company Number: DE-GILEAD-2022-0583562

PATIENT
  Age: 57 Year
  Sex: Male
  Weight: 73 kg

DRUGS (9)
  1. YESCARTA [Suspect]
     Active Substance: AXICABTAGENE CILOLEUCEL
     Indication: Diffuse large B-cell lymphoma
     Dosage: 0.4 ? 2 X10^18 CELLS
     Route: 042
     Dates: start: 20220228, end: 20220228
  2. MEROPENEM [Concomitant]
     Active Substance: MEROPENEM
     Indication: Lung infiltration
  3. MEROPENEM [Concomitant]
     Active Substance: MEROPENEM
     Indication: Colitis
  4. LINEZOLID [Concomitant]
     Active Substance: LINEZOLID
     Indication: Lung infiltration
     Dosage: UNK
     Dates: start: 20220302, end: 20220304
  5. LINEZOLID [Concomitant]
     Active Substance: LINEZOLID
     Indication: Colitis
  6. METRONIDAZOLE [Concomitant]
     Active Substance: METRONIDAZOLE
     Indication: Lung infiltration
     Dosage: UNK
     Dates: start: 20220303, end: 20220310
  7. METRONIDAZOLE [Concomitant]
     Active Substance: METRONIDAZOLE
     Indication: Colitis
  8. AZITHROMYCIN [Concomitant]
     Active Substance: AZITHROMYCIN
     Indication: Lung infiltration
     Dosage: UNK
     Dates: start: 20220305, end: 20220307
  9. AZITHROMYCIN [Concomitant]
     Active Substance: AZITHROMYCIN
     Indication: Colitis

REACTIONS (7)
  - Respiratory failure [Unknown]
  - Pneumonia fungal [Unknown]
  - Bacterial sepsis [Unknown]
  - Death [Fatal]
  - Immune effector cell-associated neurotoxicity syndrome [Recovered/Resolved]
  - Cytokine release syndrome [Recovered/Resolved]
  - Diffuse large B-cell lymphoma [Unknown]

NARRATIVE: CASE EVENT DATE: 20220301
